FAERS Safety Report 19029128 (Version 1)
Quarter: 2021Q1

REPORT INFORMATION
  Report Type: Spontaneous
  Country: CN (occurrence: CN)
  Receive Date: 20210318
  Receipt Date: 20210318
  Transmission Date: 20210420
  Serious: Yes (Other)
  Sender: FDA-Public Use
  Company Number: CN-PURDUE-USA-2021-0234779

PATIENT
  Age: 56 Year
  Sex: Male
  Weight: 45 kg

DRUGS (1)
  1. OXYCODONE HYDROCHLORIDE. [Suspect]
     Active Substance: OXYCODONE HYDROCHLORIDE
     Indication: OESOPHAGEAL CARCINOMA
     Dosage: 10 MG, Q12H
     Route: 048
     Dates: start: 20190610, end: 20190611

REACTIONS (6)
  - Hyperhidrosis [Recovering/Resolving]
  - Chest discomfort [Recovering/Resolving]
  - Photophobia [Recovering/Resolving]
  - Asphyxia [Recovering/Resolving]
  - Pallor [Recovering/Resolving]
  - Dysphoria [Recovering/Resolving]

NARRATIVE: CASE EVENT DATE: 20190611
